FAERS Safety Report 9801796 (Version 3)
Quarter: 2015Q1

REPORT INFORMATION
  Report Type: Spontaneous
  Country: SE (occurrence: SE)
  Receive Date: 20140107
  Receipt Date: 20150311
  Transmission Date: 20150721
  Serious: Yes (Other)
  Sender: FDA-Public Use
  Company Number: SE-GLAXOSMITHKLINE-B0957835A

PATIENT
  Age: 76 Year
  Sex: Male

DRUGS (10)
  1. LOSARTAN [Concomitant]
     Active Substance: LOSARTAN
  2. METFORMIN [Concomitant]
     Active Substance: METFORMIN HYDROCHLORIDE
  3. PANODIL [Concomitant]
     Active Substance: ACETAMINOPHEN
  4. ARIXTRA [Suspect]
     Active Substance: FONDAPARINUX SODIUM
     Route: 065
     Dates: start: 20131020, end: 20131021
  5. TROMBYL [Concomitant]
     Active Substance: ASPIRIN
  6. CITALOPRAM [Concomitant]
     Active Substance: CITALOPRAM HYDROBROMIDE
  7. JANUVIA [Concomitant]
     Active Substance: SITAGLIPTIN PHOSPHATE
  8. ATENOLOL. [Concomitant]
     Active Substance: ATENOLOL
  9. PREDNISOLONE. [Concomitant]
     Active Substance: PREDNISOLONE
  10. CLOPIDOGREL [Suspect]
     Active Substance: CLOPIDOGREL BISULFATE
     Route: 065
     Dates: start: 20131020, end: 20131021

REACTIONS (1)
  - Haematuria [Unknown]

NARRATIVE: CASE EVENT DATE: 20131021
